FAERS Safety Report 21579818 (Version 2)
Quarter: 2022Q4

REPORT INFORMATION
  Report Type: Spontaneous
  Country: IT (occurrence: IT)
  Receive Date: 20221110
  Receipt Date: 20221124
  Transmission Date: 20230112
  Serious: Yes (Other)
  Sender: FDA-Public Use
  Company Number: None

PATIENT
  Age: 80 Year
  Sex: Female
  Weight: 70 kg

DRUGS (6)
  1. CARBOPLATIN [Suspect]
     Active Substance: CARBOPLATIN
     Indication: Endometrial cancer
     Dosage: UNK
     Route: 042
     Dates: start: 20220701, end: 20221103
  2. PACLITAXEL [Suspect]
     Active Substance: PACLITAXEL
     Indication: Uterine neoplasm
     Dosage: 80 MG, WEEKLY, (FREQ:60 MIN;80MG FOR 60 MINUTES)
     Route: 042
     Dates: start: 20220701, end: 20221103
  3. DEXAMETHASONE [Concomitant]
     Active Substance: DEXAMETHASONE
     Indication: Drug hypersensitivity
     Dosage: 10 MG, (FREQ:15 MIN;10MG FOR 15 MINUTES)
     Route: 042
     Dates: start: 20220701, end: 20221103
  4. TRIMETON [Concomitant]
     Active Substance: CHLORPHENIRAMINE MALEATE
     Indication: Hypersensitivity
     Dosage: 10 MG, (FREQ:15 MIN;10MG  FOR 15 MINUTES)
     Route: 042
     Dates: start: 20220701, end: 20221103
  5. FAMOTIDINE [Concomitant]
     Active Substance: FAMOTIDINE
     Indication: Ulcer
     Dosage: 20 MG, (FREQ:20 MIN;20MG FOR 20 MINUTES)
     Route: 048
     Dates: start: 20220701, end: 20221103
  6. ONDANSETRON [Concomitant]
     Active Substance: ONDANSETRON
     Indication: Nausea
     Dosage: 8 MG, (FREQ:15 MIN;8MG FOR 15 MINUTES)
     Route: 042
     Dates: start: 20220701, end: 20221103

REACTIONS (6)
  - Leukopenia [Recovered/Resolved]
  - Lymphopenia [Recovering/Resolving]
  - Dry eye [Recovering/Resolving]
  - Paraesthesia [Recovering/Resolving]
  - Weight decreased [Recovering/Resolving]
  - Somnolence [Recovering/Resolving]

NARRATIVE: CASE EVENT DATE: 20220701
